FAERS Safety Report 5989739-4 (Version None)
Quarter: 2008Q4

REPORT INFORMATION
  Report Type: 
  Country: None (occurrence: None)
  Receive Date: 20081208
  Receipt Date: 20081125
  Transmission Date: 20090506
  Serious: Yes (Hospitalization)
  Sender: FDA-Public Use
  Company Number: 106400

PATIENT
  Age: 72 Year
  Sex: Female
  Weight: 58 kg

DRUGS (4)
  1. ACETAMINOPHEN [Suspect]
     Dosage: 1 GRAM QID
  2. FLOXACILLIN SODIUM [Suspect]
     Indication: INFECTION
     Dosage: 2 GRAM/6 TIMES DAILY/ INTRAVENOUS
     Route: 042
  3. UNSPECIFIED BRONCHODILATORS [Concomitant]
  4. UNSPECIFIED ANALGESICS (INCLUDING NON-STEROIDAL ANTI-INFLAMMATORY DRUG [Concomitant]

REACTIONS (11)
  - ANION GAP INCREASED [None]
  - BLOOD CULTURE POSITIVE [None]
  - CONFUSIONAL STATE [None]
  - EXTRADURAL ABSCESS [None]
  - HYPERNATRAEMIA [None]
  - HYPOKALAEMIA [None]
  - METABOLIC ACIDOSIS [None]
  - PSOAS ABSCESS [None]
  - PYROGLUTAMATE INCREASED [None]
  - SOMNOLENCE [None]
  - STAPHYLOCOCCAL INFECTION [None]
